FAERS Safety Report 18973164 (Version 1)
Quarter: 2021Q1

REPORT INFORMATION
  Report Type: Report from Study
  Country: US (occurrence: US)
  Receive Date: 20210305
  Receipt Date: 20210305
  Transmission Date: 20210420
  Serious: Yes (Hospitalization, Other)
  Sender: FDA-Public Use
  Company Number: US-ROCHE-2776420

PATIENT
  Age: 78 Year
  Sex: Male
  Weight: 92 kg

DRUGS (3)
  1. NIVOLUMAB [Suspect]
     Active Substance: NIVOLUMAB
     Indication: MALIGNANT MELANOMA
     Dosage: 3 MG/KG. DATE OF MOST RECENT DOSE OF NIVOLUMAB PRIOR TO EVENT ONSET: 04/FEB/2021
     Route: 042
     Dates: start: 20201203
  2. IPILIMUMAB [Suspect]
     Active Substance: IPILIMUMAB
     Indication: MALIGNANT MELANOMA
     Dosage: 1 MG/KG. DATE OF MOST RECENT DOSE OF IPILIMUMAB PRIOR TO EVENT ONSET: 04/FEB/2021
     Route: 042
     Dates: start: 20201203
  3. TOCILIZUMAB. [Suspect]
     Active Substance: TOCILIZUMAB
     Indication: MALIGNANT MELANOMA
     Dosage: 4 MG/KG. DATE OF MOST RECENT DOSE OF TOCILIZUMAB PRIOR TO EVENT ONSET: 12/JAN/2021
     Route: 042
     Dates: start: 20201203

REACTIONS (7)
  - Decreased appetite [Not Recovered/Not Resolved]
  - Pyrexia [Not Recovered/Not Resolved]
  - Fatigue [Not Recovered/Not Resolved]
  - Asthenia [Not Recovered/Not Resolved]
  - Nausea [Not Recovered/Not Resolved]
  - Influenza [Not Recovered/Not Resolved]
  - Adrenal insufficiency [Not Recovered/Not Resolved]

NARRATIVE: CASE EVENT DATE: 20210214
